FAERS Safety Report 8561771-6 (Version None)
Quarter: 2012Q3

REPORT INFORMATION
  Report Type: 
  Country: None (occurrence: None)
  Receive Date: 20120802
  Receipt Date: 20120723
  Transmission Date: 20120928
  Serious: Yes (Death, Hospitalization, Other)
  Sender: FDA-Public Use
  Company Number: US-MSD-1201USA02283

PATIENT

DRUGS (11)
  1. FOSAMAX [Suspect]
     Dosage: 70 MG
     Dates: start: 20090120, end: 20100601
  2. FOSAMAX [Suspect]
     Indication: OSTEOPOROSIS
     Dosage: 10 MG, QD
     Route: 048
     Dates: start: 20000201, end: 20021001
  3. ALENDRONATE SODIUM [Suspect]
     Indication: OSTEOPENIA
     Dosage: 70 MG, UNK
     Route: 048
     Dates: start: 20080201, end: 20100601
  4. ALENDRONATE SODIUM [Suspect]
  5. ALENDRONATE SODIUM [Suspect]
     Indication: OSTEOPOROSIS
  6. FOSAMAX [Suspect]
     Dosage: 70 MG, UNK
     Route: 048
     Dates: start: 20021101, end: 20080201
  7. ALENDRONATE SODIUM [Suspect]
     Dosage: 70 MG
     Dates: start: 20100331, end: 20100401
  8. ALENDRONATE SODIUM [Suspect]
     Dosage: 70 MG
     Dates: start: 20100621, end: 20101101
  9. FOSAMAX [Suspect]
  10. ALENDRONATE SODIUM [Suspect]
  11. FOSAMAX [Suspect]
     Indication: OSTEOPENIA
     Dosage: 5 MG, UNK
     Route: 048
     Dates: start: 19990801, end: 20000201

REACTIONS (53)
  - FEMUR FRACTURE [None]
  - CONFUSIONAL STATE [None]
  - TOOTH DISORDER [None]
  - HYPERTENSION [None]
  - PYELONEPHRITIS [None]
  - INSOMNIA [None]
  - ALCOHOL ABUSE [None]
  - HYPERLIPIDAEMIA [None]
  - DIABETES MELLITUS [None]
  - APPENDIX DISORDER [None]
  - OCCIPITAL NEURALGIA [None]
  - FALL [None]
  - CONJUNCTIVITIS [None]
  - ORAL TORUS [None]
  - RADIUS FRACTURE [None]
  - MUSCLE STRAIN [None]
  - TRANSIENT ISCHAEMIC ATTACK [None]
  - HYPERGLYCAEMIA [None]
  - DEMENTIA [None]
  - DECREASED APPETITE [None]
  - ARTHROPOD BITE [None]
  - PHOTOPSIA [None]
  - DRUG HYPERSENSITIVITY [None]
  - HEADACHE [None]
  - DIARRHOEA [None]
  - TEMPERATURE INTOLERANCE [None]
  - DEPRESSION [None]
  - ALTERED STATE OF CONSCIOUSNESS [None]
  - HYPERCHOLESTEROLAEMIA [None]
  - HYPERKALAEMIA [None]
  - CEREBRAL HAEMORRHAGE [None]
  - OSTEONECROSIS OF JAW [None]
  - HYPONATRAEMIA [None]
  - NEPHROLITHIASIS [None]
  - MALAISE [None]
  - ALOPECIA [None]
  - VASCULAR DEMENTIA [None]
  - CEREBROVASCULAR ACCIDENT [None]
  - ASTHENIA [None]
  - COMPLEX PARTIAL SEIZURES [None]
  - LEUKOCYTOSIS [None]
  - PARANOIA [None]
  - DRY MOUTH [None]
  - CARDIO-RESPIRATORY ARREST [None]
  - GINGIVAL BLEEDING [None]
  - ANXIETY [None]
  - FATIGUE [None]
  - CONTUSION [None]
  - MICTURITION URGENCY [None]
  - LOW TURNOVER OSTEOPATHY [None]
  - DENTAL CARIES [None]
  - DEHYDRATION [None]
  - CONSTIPATION [None]
